FAERS Safety Report 21622562 (Version 3)
Quarter: 2022Q4

REPORT INFORMATION
  Report Type: Spontaneous
  Country: IT (occurrence: IT)
  Receive Date: 20221121
  Receipt Date: 20221206
  Transmission Date: 20230113
  Serious: Yes (Other)
  Sender: FDA-Public Use
  Company Number: IT-SA-SAC20221118001615

PATIENT
  Age: 41 Year
  Sex: Male

DRUGS (1)
  1. DUPILUMAB [Suspect]
     Active Substance: DUPILUMAB
     Indication: Dermatitis atopic
     Dosage: 300 MG , EVERY 15 DAYS
     Route: 058
     Dates: start: 2020

REACTIONS (1)
  - Seronegative arthritis [Unknown]

NARRATIVE: CASE EVENT DATE: 20220101
